FAERS Safety Report 6743459-7 (Version None)
Quarter: 2010Q2

REPORT INFORMATION
  Report Type: 
  Country: None (occurrence: None)
  Receive Date: 20100527
  Receipt Date: 20100517
  Transmission Date: 20101027
  Serious: Yes (Other)
  Sender: FDA-Public Use
  Company Number: US-MYLANLABS-2010S1008618

PATIENT
  Age: 62 Year
  Sex: Female

DRUGS (3)
  1. ARIMIDEX [Suspect]
     Indication: BREAST CANCER
     Route: 065
  2. TAMOXIFEN CITRATE [Suspect]
     Indication: BREAST CANCER
     Route: 065
  3. LETROZOLE [Suspect]
     Indication: BREAST CANCER
     Route: 065

REACTIONS (1)
  - COLORECTAL CANCER [None]
